FAERS Safety Report 9985361 (Version 1)
Quarter: 2014Q1

REPORT INFORMATION
  Report Type: Report from Study
  Country: US (occurrence: US)
  Receive Date: 20140307
  Receipt Date: 20140307
  Transmission Date: 20141002
  Serious: No
  Sender: FDA-Public Use
  Company Number: US-ABBVIE-14P-163-1185972-00

PATIENT
  Age: 31 Year
  Sex: Female

DRUGS (12)
  1. HUMIRA [Suspect]
     Indication: PSORIATIC ARTHROPATHY
     Dates: start: 201302
  2. HUMIRA [Suspect]
     Indication: PSORIATIC ARTHROPATHY
  3. PROMETHAZINE [Concomitant]
     Indication: NAUSEA
  4. SPIRIVA [Concomitant]
     Indication: ASTHMA
     Dosage: PREVENTIVE INHALER
     Route: 055
  5. PROVENTIL [Concomitant]
     Indication: ASTHMA
  6. NEXIUM [Concomitant]
     Indication: GASTROOESOPHAGEAL REFLUX DISEASE
     Route: 048
  7. SINGULAIR [Concomitant]
     Indication: HYPERSENSITIVITY
     Route: 048
  8. ABILIFY [Concomitant]
     Indication: BIPOLAR DISORDER
     Route: 048
  9. DIZEPAM [Concomitant]
     Indication: ANXIETY
     Route: 048
  10. PERCOCET [Concomitant]
     Indication: PAIN
     Dosage: 10/325 MG
     Route: 048
  11. ROPINIROLE [Concomitant]
     Indication: RESTLESS LEGS SYNDROME
     Route: 048
  12. UNKNOWN MEDICATION [Concomitant]
     Indication: MIGRAINE
     Route: 048

REACTIONS (10)
  - Aphonia [Not Recovered/Not Resolved]
  - Cough [Not Recovered/Not Resolved]
  - Nausea [Not Recovered/Not Resolved]
  - Injection site pain [Not Recovered/Not Resolved]
  - Injection site pain [Recovered/Resolved]
  - Injection site erythema [Recovered/Resolved]
  - Abdominal pain upper [Not Recovered/Not Resolved]
  - Dyspnoea [Not Recovered/Not Resolved]
  - Bronchitis [Not Recovered/Not Resolved]
  - Unevaluable event [Unknown]
